FAERS Safety Report 13249465 (Version 1)
Quarter: 2017Q1

REPORT INFORMATION
  Report Type: Spontaneous
  Country: US (occurrence: US)
  Receive Date: 20170218
  Receipt Date: 20170218
  Transmission Date: 20170428
  Serious: No
  Sender: FDA-Public Use
  Company Number: US-ALLERGAN-1667463US

PATIENT
  Sex: Female

DRUGS (8)
  1. RESTASIS [Suspect]
     Active Substance: CYCLOSPORINE
     Indication: DRY EYE
     Dosage: 2 GTT, BID
     Route: 047
     Dates: start: 2014
  2. OMEPRAZOLE. [Concomitant]
     Active Substance: OMEPRAZOLE
     Indication: DRY MOUTH
     Dosage: UNK
     Route: 048
  3. CALCIUM [Concomitant]
     Active Substance: CALCIUM
     Indication: OSTEOPOROSIS
     Dosage: UNK
     Route: 048
  4. PILOCARPINE. [Concomitant]
     Active Substance: PILOCARPINE
     Indication: DRY THROAT
     Dosage: UNK
  5. IRON [Concomitant]
     Active Substance: IRON
     Indication: IRON DEFICIENCY
     Dosage: UNK
     Route: 048
  6. SINGULAIR [Concomitant]
     Active Substance: MONTELUKAST SODIUM
     Indication: HYPERSENSITIVITY
     Dosage: 10 MG, QD
     Route: 048
  7. ALREX [Concomitant]
     Active Substance: LOTEPREDNOL ETABONATE
     Indication: PRODUCT USED FOR UNKNOWN INDICATION
  8. RESTASIS [Suspect]
     Active Substance: CYCLOSPORINE
     Indication: SJOGREN^S SYNDROME
     Dosage: 2 GTT, TID
     Route: 047
     Dates: start: 2015

REACTIONS (3)
  - Off label use [Unknown]
  - Punctal plug insertion [Not Recovered/Not Resolved]
  - Retinal disorder [Not Recovered/Not Resolved]

NARRATIVE: CASE EVENT DATE: 2016
